FAERS Safety Report 7478988-4 (Version None)
Quarter: 2011Q2

REPORT INFORMATION
  Report Type: 
  Country: None (occurrence: None)
  Receive Date: 20110513
  Receipt Date: 20090824
  Transmission Date: 20111010
  Serious: Yes (Hospitalization, Other)
  Sender: FDA-Public Use
  Company Number: PHHY2009IN67115

PATIENT
  Sex: Female

DRUGS (1)
  1. ZOMETA [Suspect]
     Indication: BREAST CANCER
     Dosage: UNK
     Dates: start: 20080801

REACTIONS (4)
  - SENSORY DISTURBANCE [None]
  - BONE PAIN [None]
  - PATHOLOGICAL FRACTURE [None]
  - INJURY [None]
